FAERS Safety Report 17057257 (Version 2)
Quarter: 2022Q1

REPORT INFORMATION
  Report Type: Report from Study
  Country: GB (occurrence: GB)
  Receive Date: 20191121
  Receipt Date: 20220311
  Transmission Date: 20220424
  Serious: Yes (Hospitalization)
  Sender: FDA-Public Use
  Company Number: GB-EMA-DD-20191028-ABDUL_J-173044

PATIENT
  Age: 45 Year
  Sex: Female

DRUGS (22)
  1. DOCETAXEL [Suspect]
     Active Substance: DOCETAXEL
     Indication: Breast cancer metastatic
     Dosage: 120 MG
     Route: 042
     Dates: start: 20150804, end: 20151117
  2. EXEMESTANE [Suspect]
     Active Substance: EXEMESTANE
     Indication: Breast cancer metastatic
     Dosage: 25 MG
     Route: 048
     Dates: start: 20150518
  3. IBANDRONIC ACID [Suspect]
     Active Substance: IBANDRONIC ACID
     Indication: Metastases to bone
     Dosage: 50 MG
     Route: 048
     Dates: start: 20150518
  4. PERTUZUMAB [Suspect]
     Active Substance: PERTUZUMAB
     Indication: Breast cancer metastatic
     Dosage: MAINTAINANCE DOSE,420 MG
     Route: 042
     Dates: start: 20151217, end: 20160308
  5. PERTUZUMAB [Suspect]
     Active Substance: PERTUZUMAB
     Dosage: MAINTAINANCE DOSE,420 MG
     Route: 042
     Dates: start: 20160715
  6. PERTUZUMAB [Suspect]
     Active Substance: PERTUZUMAB
     Dosage: ONE CYCLE (LOADING DOSE),840 MG
     Route: 042
     Dates: start: 20150804, end: 20150804
  7. PERTUZUMAB [Suspect]
     Active Substance: PERTUZUMAB
     Dosage: LOADING DOSE,840 MG
     Route: 042
     Dates: start: 20160623, end: 20160623
  8. PERTUZUMAB [Suspect]
     Active Substance: PERTUZUMAB
     Dosage: MAINTAINANCE DOSE,420 MG
     Route: 042
     Dates: start: 20150825, end: 20151117
  9. HYALURONIDASE (HUMAN RECOMBINANT)\TRASTUZUMAB [Suspect]
     Active Substance: HYALURONIDASE (HUMAN RECOMBINANT)\TRASTUZUMAB
     Indication: Breast cancer metastatic
     Dosage: MAINTAINANCE DOSE,600 MG
     Route: 058
     Dates: start: 20150825, end: 20151117
  10. HYALURONIDASE (HUMAN RECOMBINANT)\TRASTUZUMAB [Suspect]
     Active Substance: HYALURONIDASE (HUMAN RECOMBINANT)\TRASTUZUMAB
     Dosage: STOPPED
     Route: 058
     Dates: end: 20160308
  11. HYALURONIDASE (HUMAN RECOMBINANT)\TRASTUZUMAB [Suspect]
     Active Substance: HYALURONIDASE (HUMAN RECOMBINANT)\TRASTUZUMAB
     Dosage: 600 MG
     Route: 058
     Dates: start: 20160623
  12. TRASTUZUMAB [Suspect]
     Active Substance: TRASTUZUMAB
     Indication: Breast cancer metastatic
     Dosage: LOADING DOSE,600 MG
     Route: 042
     Dates: start: 20151217, end: 20160308
  13. TRASTUZUMAB [Suspect]
     Active Substance: TRASTUZUMAB
     Dosage: LOADING DOSE,483 MG
     Route: 042
     Dates: start: 20150803, end: 20150803
  14. DEXAMETHASONE [Concomitant]
     Active Substance: DEXAMETHASONE
     Dosage: FOR 3 DAYS EVERY 3 WEEKS, 8 MG
     Route: 048
     Dates: start: 20150803
  15. DENOSUMAB [Concomitant]
     Active Substance: DENOSUMAB
     Dosage: 120 MG
     Route: 058
     Dates: start: 20160127
  16. PIPERACILLIN SODIUM\TAZOBACTAM SODIUM [Concomitant]
     Active Substance: PIPERACILLIN SODIUM\TAZOBACTAM SODIUM
  17. AMOXICILLIN\CLAVULANATE POTASSIUM [Concomitant]
     Active Substance: AMOXICILLIN\CLAVULANATE POTASSIUM
     Dosage: [AMOXICILLIN;CLAVULANATE POTASSIUM]
  18. MEROPENEM [Concomitant]
     Active Substance: MEROPENEM
  19. GENTAMICIN [Concomitant]
     Active Substance: GENTAMICIN
  20. RAMIPRIL [Concomitant]
     Active Substance: RAMIPRIL
  21. ACETAMINOPHEN [Concomitant]
     Active Substance: ACETAMINOPHEN
  22. BISOPROLOL [Concomitant]
     Active Substance: BISOPROLOL

REACTIONS (15)
  - Device related infection [Recovered/Resolved]
  - Fatigue [Recovered/Resolved]
  - Mucosal inflammation [Recovered/Resolved]
  - Epistaxis [Recovered/Resolved]
  - Gastrooesophageal reflux disease [Recovered/Resolved]
  - Influenza like illness [Recovered/Resolved]
  - Diarrhoea [Recovered/Resolved]
  - Fatigue [Recovered/Resolved]
  - Ejection fraction decreased [Recovered/Resolved]
  - Rash [Recovered/Resolved]
  - Alopecia [Recovered/Resolved]
  - Hot flush [Unknown]
  - Gingival swelling [Recovered/Resolved]
  - Lymphoedema [Recovered/Resolved]
  - Anaemia [Recovered/Resolved]

NARRATIVE: CASE EVENT DATE: 20150801
